FAERS Safety Report 12980300 (Version 1)
Quarter: 2016Q4

REPORT INFORMATION
  Report Type: Spontaneous
  Country: TR (occurrence: TR)
  Receive Date: 20161128
  Receipt Date: 20161128
  Transmission Date: 20170207
  Serious: Yes (Hospitalization)
  Sender: FDA-Public Use
  Company Number: TR-SA-2016SA211161

PATIENT
  Age: 40 Year
  Sex: Female

DRUGS (2)
  1. AUBAGIO [Suspect]
     Active Substance: TERIFLUNOMIDE
     Route: 048
     Dates: start: 201604, end: 201610
  2. NEURONTIN [Concomitant]
     Active Substance: GABAPENTIN

REACTIONS (3)
  - Pancreatitis [Recovering/Resolving]
  - Lipase increased [Recovering/Resolving]
  - Amylase increased [Recovering/Resolving]

NARRATIVE: CASE EVENT DATE: 201610
